FAERS Safety Report 10453285 (Version 1)
Quarter: 2014Q3

REPORT INFORMATION
  Report Type: Spontaneous
  Country: US (occurrence: US)
  Receive Date: 20140915
  Receipt Date: 20140915
  Transmission Date: 20150326
  Serious: No
  Sender: FDA-Public Use
  Company Number: US-BAYER-2014-133509

PATIENT
  Age: 81 Year
  Sex: Female
  Weight: 72.56 kg

DRUGS (2)
  1. PREDNISONE. [Concomitant]
     Active Substance: PREDNISONE
     Dosage: UNK
  2. MAGNEVIST [Suspect]
     Active Substance: GADOPENTETATE DIMEGLUMINE
     Indication: NUCLEAR MAGNETIC RESONANCE IMAGING BRAIN
     Dosage: 14.5 ML, ONCE
     Route: 042
     Dates: start: 20140822, end: 20140822

REACTIONS (4)
  - Throat irritation [Recovered/Resolved]
  - Eye pruritus [Recovered/Resolved]
  - Oropharyngeal pain [Recovered/Resolved]
  - Lacrimation increased [Recovered/Resolved]
